FAERS Safety Report 6004099-0 (Version None)
Quarter: 2008Q4

REPORT INFORMATION
  Report Type: 
  Country: None (occurrence: None)
  Receive Date: 20081215
  Receipt Date: 20081215
  Transmission Date: 20090506
  Serious: Yes (Other)
  Sender: FDA-Public Use
  Company Number: None

PATIENT
  Age: 67 Year
  Sex: Male
  Weight: 108.8633 kg

DRUGS (1)
  1. BOTOX [Suspect]
     Indication: BACK PAIN
     Dosage: ONE SESSION IM
     Route: 030
     Dates: start: 20050101, end: 20050101

REACTIONS (4)
  - DRUG INEFFECTIVE [None]
  - FLUID RETENTION [None]
  - GENERALISED OEDEMA [None]
  - GLOMERULONEPHRITIS MEMBRANOUS [None]
